FAERS Safety Report 8257089-1 (Version None)
Quarter: 2012Q1

REPORT INFORMATION
  Report Type: 
  Country: None (occurrence: None)
  Receive Date: 20120330
  Receipt Date: 20120326
  Transmission Date: 20120608
  Serious: Yes (Other)
  Sender: FDA-Public Use
  Company Number: 2012-001230

PATIENT
  Age: 74 Year
  Sex: Male

DRUGS (12)
  1. RISEDRONATE SODIUM [Suspect]
     Indication: OSTEOGENESIS IMPERFECTA
     Dosage: 2.5 MG ONCE DAILY, ORAL
     Route: 048
     Dates: start: 20120201, end: 20120203
  2. MAGNESIUM OXIDE (MAGNESIUM OXIDE) [Concomitant]
  3. MOBIC [Concomitant]
  4. PANSOPORIN (CEFOTIAM HYDROCHLORIDE) [Concomitant]
  5. METHYCOBAL (MECOBALAMIN) [Concomitant]
  6. BERIZYM /00517401/ (ENZYMES NOS) [Concomitant]
  7. METHYLPREDNISOLONE SODIUM SUCCINATE [Concomitant]
  8. FOIPAN (CAMOSTAT MESILATE) [Concomitant]
  9. VEEN D (CALCIUM CHLORIDE DIHYDRATE, GLUCOSE, POTASSIUM CHLORIDE, SODIU [Concomitant]
  10. JUVELA (TOCOPHERYL ACETATE) [Concomitant]
  11. VIT K CAP [Concomitant]
  12. BFLUID (AMINO ACIDS NOS, ELECTROLYTES NOS, GLUCOSE, THIAMINE HYDROCHLO [Concomitant]

REACTIONS (7)
  - MYALGIA [None]
  - ATRIAL FIBRILLATION [None]
  - HAEMATOCRIT DECREASED [None]
  - HAEMOGLOBIN DECREASED [None]
  - PULSE ABNORMAL [None]
  - PAIN IN JAW [None]
  - ANGINA PECTORIS [None]
